FAERS Safety Report 8345042-9 (Version None)
Quarter: 2012Q2

REPORT INFORMATION
  Report Type: 
  Country: None (occurrence: None)
  Receive Date: 20120508
  Receipt Date: 20120427
  Transmission Date: 20120825
  Serious: Yes (Hospitalization)
  Sender: FDA-Public Use
  Company Number: US-ACTELION-A-NJ2012-61808

PATIENT

DRUGS (4)
  1. CALCIUM CHANNEL BLOCKERS [Concomitant]
  2. OXYGEN [Concomitant]
  3. COUMADIN [Concomitant]
  4. TRACLEER [Suspect]
     Indication: PULMONARY ARTERIAL HYPERTENSION
     Dosage: UNK
     Route: 048
     Dates: start: 20111227

REACTIONS (7)
  - NERVOUSNESS [None]
  - THROMBOSIS [None]
  - DYSPNOEA [None]
  - CHEST PAIN [None]
  - MUSCULAR WEAKNESS [None]
  - COUGH [None]
  - WHEEZING [None]
